FAERS Safety Report 11813136 (Version 1)
Quarter: 2015Q4

REPORT INFORMATION
  Report Type: Spontaneous
  Country: US (occurrence: None)
  Receive Date: 20151207
  Receipt Date: 20151207
  Transmission Date: 20160305
  Serious: Yes (Hospitalization)
  Sender: FDA-Public Use
  Company Number: 15AE056

PATIENT
  Sex: Male

DRUGS (4)
  1. DAYTIME COLD AND PAIN RELIEF [Suspect]
     Active Substance: ACETAMINOPHEN\DEXTROMETHORPHAN HYDROBROMIDE\GUAIFENESIN\PHENYLEPHRINE HYDROCHLORIDE
     Indication: COUGH
     Dates: start: 20151027, end: 20151030
  2. RAPAFLO [Concomitant]
     Active Substance: SILODOSIN
  3. DAYTIME COLD AND PAIN RELIEF [Suspect]
     Active Substance: ACETAMINOPHEN\DEXTROMETHORPHAN HYDROBROMIDE\GUAIFENESIN\PHENYLEPHRINE HYDROCHLORIDE
     Indication: PULMONARY CONGESTION
     Dates: start: 20151027, end: 20151030
  4. FINASTERIDE. [Concomitant]
     Active Substance: FINASTERIDE

REACTIONS (4)
  - Bladder pain [None]
  - Dysuria [None]
  - Abdominal pain upper [None]
  - Urinary retention [None]

NARRATIVE: CASE EVENT DATE: 20151030
